FAERS Safety Report 9031002 (Version 2)
Quarter: 2013Q4

REPORT INFORMATION
  Report Type: Spontaneous
  Country: GB (occurrence: GB)
  Receive Date: 20130123
  Receipt Date: 20131004
  Transmission Date: 20140711
  Serious: Yes (Disabling)
  Sender: FDA-Public Use
  Company Number: PHHY2013GB005364

PATIENT
  Age: 78 Year
  Sex: Male
  Weight: 63 kg

DRUGS (4)
  1. TAMSULOSIN HYDROCHLORIDE [Suspect]
     Dosage: 400 MG QD AT NIGHT
     Dates: start: 20121210, end: 20130114
  2. INDORAMIN [Concomitant]
     Dates: start: 20120910
  3. FERROUS SULPHATE [Concomitant]
     Dates: start: 20121009, end: 20121106
  4. ALPHADERM [Concomitant]
     Dates: start: 20121105, end: 20121203

REACTIONS (2)
  - Insomnia [Recovered/Resolved]
  - Poor quality sleep [Recovered/Resolved]
